FAERS Safety Report 6717660-2 (Version None)
Quarter: 2010Q2

REPORT INFORMATION
  Report Type: 
  Country: None (occurrence: None)
  Receive Date: 20100507
  Receipt Date: 20100507
  Transmission Date: 20101027
  Serious: Yes (Other)
  Sender: FDA-Public Use
  Company Number: None

PATIENT
  Age: 35 Year
  Sex: Female
  Weight: 58.514 kg

DRUGS (2)
  1. BACTRIM [Suspect]
  2. SEPTRA [Suspect]

REACTIONS (10)
  - CHILLS [None]
  - DEHYDRATION [None]
  - DISEASE COMPLICATION [None]
  - HYPERHIDROSIS [None]
  - INFLUENZA [None]
  - MEDICATION ERROR [None]
  - MYALGIA [None]
  - PYREXIA [None]
  - VIRAL INFECTION [None]
  - VOMITING [None]
